FAERS Safety Report 9402415 (Version 1)
Quarter: 2013Q3

REPORT INFORMATION
  Report Type: Spontaneous
  Country: US (occurrence: US)
  Receive Date: 20130716
  Receipt Date: 20130716
  Transmission Date: 20140515
  Serious: No
  Sender: FDA-Public Use
  Company Number: US-PFIZER INC-2013206526

PATIENT
  Age: 80 Year
  Sex: Female
  Weight: 69.84 kg

DRUGS (3)
  1. OXYCODONE HYDROCHLORIDE [Suspect]
     Dosage: UNK
  2. LYRICA [Suspect]
     Indication: BACK PAIN
     Dosage: 50 MG, 2X/DAY
     Dates: start: 20130711
  3. LYRICA [Suspect]
     Indication: NERVE COMPRESSION

REACTIONS (2)
  - Dizziness [Unknown]
  - Somnolence [Unknown]
